FAERS Safety Report 9237921 (Version 1)
Quarter: 2013Q2

REPORT INFORMATION
  Report Type: Spontaneous
  Country: US (occurrence: US)
  Receive Date: 20130418
  Receipt Date: 20130418
  Transmission Date: 20140414
  Serious: No
  Sender: FDA-Public Use
  Company Number: US-009507513-1304USA008569

PATIENT
  Age: 46 Year
  Sex: Female

DRUGS (6)
  1. SAPHRIS [Suspect]
     Indication: BIPOLAR DISORDER
     Dosage: 5 MG, HS
     Dates: start: 20130214, end: 20130305
  2. SAPHRIS [Suspect]
     Indication: OBSESSIVE-COMPULSIVE DISORDER
  3. WELLBUTRIN [Concomitant]
  4. LAMICTAL [Concomitant]
  5. VISTARIL [Concomitant]
  6. ZOLOFT [Concomitant]

REACTIONS (4)
  - Dizziness [Unknown]
  - Insomnia [Unknown]
  - Pain [Unknown]
  - Somnolence [Unknown]
